FAERS Safety Report 5875798-6 (Version None)
Quarter: 2008Q3

REPORT INFORMATION
  Report Type: 
  Country: None (occurrence: None)
  Receive Date: 20080909
  Receipt Date: 20080828
  Transmission Date: 20090109
  Serious: Yes (Hospitalization)
  Sender: FDA-Public Use
  Company Number: BE-PFIZER INC-2006081775

PATIENT
  Sex: Male
  Weight: 76 kg

DRUGS (7)
  1. SU-011,248 [Suspect]
     Indication: METASTATIC RENAL CELL CARCINOMA
     Dosage: DAILY DOSE:50MG-TEXT:50 NG-FREQ:OD - INTERVAL: 4W/2W
     Route: 048
     Dates: start: 20060505, end: 20060517
  2. AMIODARONE HCL [Concomitant]
     Route: 048
     Dates: start: 20040209, end: 20060505
  3. METOPROLOL SUCCINATE [Concomitant]
     Route: 048
     Dates: start: 20060505
  4. ACETAMINOPHEN [Concomitant]
     Route: 048
     Dates: start: 20060502
  5. ACETYLCYSTEINE [Concomitant]
     Route: 048
     Dates: start: 20060511
  6. AMOXICILLIN + CLAVULANATE POTASSIUM [Concomitant]
     Route: 042
     Dates: start: 20060427, end: 20060503
  7. DOMPERIDONE [Concomitant]
     Route: 048
     Dates: start: 20060511

REACTIONS (6)
  - BACTERIAL INFECTION [None]
  - BRONCHITIS [None]
  - CHEST PAIN [None]
  - PYREXIA [None]
  - VOMITING [None]
  - YELLOW SKIN [None]
